FAERS Safety Report 22367743 (Version 1)
Quarter: 2023Q2

REPORT INFORMATION
  Report Type: Report from Study
  Country: CA (occurrence: CA)
  Receive Date: 20230525
  Receipt Date: 20230525
  Transmission Date: 20230721
  Serious: Yes (Hospitalization)
  Sender: FDA-Public Use
  Company Number: CA-JNJFOC-20230553428

PATIENT
  Age: 74 Year
  Sex: Female

DRUGS (2)
  1. SIMPONI [Suspect]
     Active Substance: GOLIMUMAB
     Indication: Ankylosing spondylitis
     Dosage: LATEST DRUG ADMINISTRATION ON 22-MAY-2023
     Route: 058
     Dates: start: 20150505
  2. SIMPONI [Suspect]
     Active Substance: GOLIMUMAB
     Indication: Crohn^s disease

REACTIONS (3)
  - Pleural effusion [Recovered/Resolved]
  - Pneumonia [Recovered/Resolved]
  - Pain [Unknown]

NARRATIVE: CASE EVENT DATE: 20230119
